FAERS Safety Report 14820290 (Version 2)
Quarter: 2018Q2

REPORT INFORMATION
  Report Type: Spontaneous
  Country: IT (occurrence: IT)
  Receive Date: 20180427
  Receipt Date: 20180506
  Transmission Date: 20180711
  Serious: Yes (Life-Threatening)
  Sender: FDA-Public Use
  Company Number: PHHY2017IT202582

PATIENT
  Age: 52 Year
  Sex: Male
  Weight: 98 kg

DRUGS (2)
  1. AFINITOR [Suspect]
     Active Substance: EVEROLIMUS
     Indication: RENAL CANCER STAGE IV
     Dosage: 10 MG, QD
     Route: 048
     Dates: start: 20171010, end: 20171102
  2. AFINITOR [Suspect]
     Active Substance: EVEROLIMUS
     Indication: CHEMOTHERAPY MULTIPLE AGENTS SYSTEMIC

REACTIONS (4)
  - Dyspnoea [Recovered/Resolved with Sequelae]
  - Skin striae [Recovered/Resolved with Sequelae]
  - Cachexia [Recovered/Resolved with Sequelae]
  - Hyperpyrexia [Recovered/Resolved with Sequelae]

NARRATIVE: CASE EVENT DATE: 20171102
